FAERS Safety Report 17091245 (Version 1)
Quarter: 2019Q4

REPORT INFORMATION
  Report Type: Spontaneous
  Country: US (occurrence: US)
  Receive Date: 20191129
  Receipt Date: 20191129
  Transmission Date: 20200122
  Serious: No
  Sender: FDA-Public Use
  Company Number: NVSC2019US052064

PATIENT
  Sex: Female

DRUGS (2)
  1. VOTRIENT [Suspect]
     Active Substance: PAZOPANIB HYDROCHLORIDE
     Indication: BENIGN CONNECTIVE TISSUE NEOPLASM
     Dosage: 800 MG, QD
     Route: 048
     Dates: start: 20191116
  2. VOTRIENT [Suspect]
     Active Substance: PAZOPANIB HYDROCHLORIDE
     Indication: BENIGN SOFT TISSUE NEOPLASM

REACTIONS (2)
  - Hypertension [Unknown]
  - Product use in unapproved indication [Unknown]
